FAERS Safety Report 8875599 (Version 1)
Quarter: 2012Q4

REPORT INFORMATION
  Report Type: 
  Country: US (occurrence: US)
  Receive Date: 20121023
  Receipt Date: 20121023
  Transmission Date: 20130627
  Serious: Yes (Other)
  Sender: FDA-Public Use
  Company Number: PHEH2012US020671

PATIENT
  Sex: Female

DRUGS (7)
  1. RECLAST [Suspect]
     Route: 042
     Dates: start: 20121003
  2. DILANTIN [Concomitant]
  3. PHENOBARBITAL [Concomitant]
  4. THYROID THERAPY [Concomitant]
  5. METHOTREXATE [Concomitant]
  6. VITAMINS [Concomitant]
  7. CALCIUM [Concomitant]

REACTIONS (4)
  - Pharyngitis streptococcal [Not Recovered/Not Resolved]
  - Throat lesion [Not Recovered/Not Resolved]
  - Throat irritation [Not Recovered/Not Resolved]
  - Swollen tongue [Not Recovered/Not Resolved]
